FAERS Safety Report 9204261 (Version 1)
Quarter: 2013Q2

REPORT INFORMATION
  Report Type: Spontaneous
  Country: US (occurrence: None)
  Receive Date: 20130401
  Receipt Date: 20130401
  Transmission Date: 20140414
  Serious: Yes (Other)
  Sender: FDA-Public Use
  Company Number: None

PATIENT
  Age: 82 Year
  Sex: Female
  Weight: 68.04 kg

DRUGS (1)
  1. ATORVASTATIN [Suspect]
     Indication: CARDIAC VALVE DISEASE

REACTIONS (3)
  - Hyperhidrosis [None]
  - Product substitution issue [None]
  - Product quality issue [None]
